FAERS Safety Report 8481918-X (Version None)
Quarter: 2012Q3

REPORT INFORMATION
  Report Type: 
  Country: None (occurrence: None)
  Receive Date: 20120702
  Receipt Date: 20120620
  Transmission Date: 20120928
  Serious: Yes (Other)
  Sender: FDA-Public Use
  Company Number: US-VERTEX PHARMACEUTICALS INC.-AE-2012-008346

PATIENT
  Sex: Female
  Weight: 88.53 kg

DRUGS (7)
  1. RIBAVIRIN [Concomitant]
     Indication: HEPATITIS C
     Route: 048
     Dates: start: 20120518
  2. INCIVEK [Suspect]
     Indication: HEPATITIS C
     Route: 048
     Dates: start: 20120518
  3. ZANTAC [Concomitant]
  4. ESTRADIOL [Concomitant]
  5. ROBAXIN [Concomitant]
  6. BUSPAR [Concomitant]
  7. PEGASYS [Concomitant]
     Indication: HEPATITIS C
     Route: 058
     Dates: start: 20120518

REACTIONS (3)
  - LOSS OF CONSCIOUSNESS [None]
  - FATIGUE [None]
  - NAUSEA [None]
